FAERS Safety Report 4567451-6 (Version None)
Quarter: 2005Q1

REPORT INFORMATION
  Report Type: 
  Country: None (occurrence: None)
  Receive Date: 20050201
  Receipt Date: 20050125
  Transmission Date: 20050727
  Serious: Yes (Hospitalization)
  Sender: FDA-Public Use
  Company Number: US-MERCK-0501USA04023

PATIENT
  Age: 55 Year
  Sex: Female

DRUGS (10)
  1. PROVIGIL [Suspect]
     Indication: FATIGUE
     Route: 048
     Dates: start: 20040901, end: 20040901
  2. PROVIGIL [Suspect]
     Route: 048
     Dates: start: 20040914, end: 20040914
  3. PROVIGIL [Suspect]
     Indication: DEPRESSION
     Route: 048
     Dates: start: 20040901, end: 20040901
  4. PROVIGIL [Suspect]
     Route: 048
     Dates: start: 20040914, end: 20040914
  5. LEXAPRO [Suspect]
     Indication: DEPRESSION
     Route: 048
  6. HYDRODIURIL [Suspect]
     Indication: POLYURIA
     Route: 048
  7. DORYX [Suspect]
     Route: 048
  8. NEURONTIN [Suspect]
     Route: 048
  9. ACIPHEX [Suspect]
     Indication: GASTROOESOPHAGEAL REFLUX DISEASE
     Route: 048
  10. KLONOPIN [Suspect]
     Route: 048

REACTIONS (21)
  - BALANCE DISORDER [None]
  - CHILLS [None]
  - CONVULSION [None]
  - DIARRHOEA [None]
  - DISORIENTATION [None]
  - DIZZINESS [None]
  - ELECTROENCEPHALOGRAM ABNORMAL [None]
  - FATIGUE [None]
  - FEELING ABNORMAL [None]
  - HYPOTENSION [None]
  - INFLUENZA LIKE ILLNESS [None]
  - LUNG INFILTRATION [None]
  - MYALGIA [None]
  - NAUSEA [None]
  - PLEURAL EFFUSION [None]
  - PNEUMONIA [None]
  - PYREXIA [None]
  - PYURIA [None]
  - URINARY TRACT INFECTION [None]
  - VOMITING [None]
  - WHITE BLOOD CELL COUNT INCREASED [None]
